FAERS Safety Report 5647765-9 (Version None)
Quarter: 2008Q1

REPORT INFORMATION
  Report Type: 
  Country: None (occurrence: None)
  Receive Date: 20080303
  Receipt Date: 20080220
  Transmission Date: 20080703
  Serious: Yes (Other)
  Sender: FDA-Public Use
  Company Number: US-PFIZER INC-2008016229

PATIENT
  Sex: Female

DRUGS (1)
  1. NEURONTIN [Suspect]

REACTIONS (5)
  - HEADACHE [None]
  - HYPERTENSION [None]
  - MACULAR OEDEMA [None]
  - SCOTOMA [None]
  - VISUAL ACUITY REDUCED [None]
